FAERS Safety Report 7934696-4 (Version None)
Quarter: 2011Q4

REPORT INFORMATION
  Report Type: 
  Country: None (occurrence: None)
  Receive Date: 20111122
  Receipt Date: 20110817
  Transmission Date: 20120403
  Serious: No
  Sender: FDA-Public Use
  Company Number: US-BAYER-2011-074339

PATIENT
  Age: 67 Year
  Sex: Male

DRUGS (10)
  1. LORAZEPAM [Concomitant]
  2. ACTOS [Concomitant]
  3. METFORMIN HCL [Concomitant]
  4. SANCTURA [Concomitant]
  5. SIMVASTATIN [Concomitant]
  6. LEVITRA [Suspect]
     Indication: ERECTILE DYSFUNCTION
     Dosage: 10 MG, UNK
     Route: 048
     Dates: start: 20110812, end: 20110813
  7. INDAPAMIDE [Concomitant]
  8. BENAZEPRIL HYDROCHLORIDE [Concomitant]
  9. GLIMEPIRIDE [Concomitant]
  10. ASPIRIN [Concomitant]

REACTIONS (1)
  - EJACULATION DISORDER [None]
